FAERS Safety Report 9832689 (Version 2)
Quarter: 2014Q1

REPORT INFORMATION
  Report Type: Report from Study
  Country: US (occurrence: US)
  Receive Date: 20140121
  Receipt Date: 20140204
  Transmission Date: 20141002
  Serious: Yes (Other)
  Sender: FDA-Public Use
  Company Number: US-PURDUE-USA-2014-0110403

PATIENT
  Age: 57 Year
  Sex: Male

DRUGS (3)
  1. OXY CR TAB [Suspect]
     Indication: OSTEOARTHRITIS
     Dosage: 320 MG, BID
     Route: 048
     Dates: start: 20131217
  2. OXY CR TAB [Suspect]
     Indication: KNEE ARTHROPLASTY
     Dosage: 320 MG, Q12H
     Route: 048
     Dates: start: 20111215
  3. OXY CR TAB [Suspect]
     Indication: POST LAMINECTOMY SYNDROME

REACTIONS (10)
  - Arthropathy [Unknown]
  - Abnormal loss of weight [Unknown]
  - Dehydration [Unknown]
  - Fall [Unknown]
  - Influenza [Not Recovered/Not Resolved]
  - Cough [Unknown]
  - Nausea [Unknown]
  - Vomiting [Unknown]
  - Diarrhoea [Unknown]
  - Asthenia [Unknown]
